FAERS Safety Report 9051541 (Version 1)
Quarter: 2013Q1

REPORT INFORMATION
  Report Type: Spontaneous
  Country: NL (occurrence: NL)
  Receive Date: 20130207
  Receipt Date: 20130207
  Transmission Date: 20140127
  Serious: Yes (Other)
  Sender: FDA-Public Use
  Company Number: NL-ABBOTT-13P-114-1042989-00

PATIENT
  Age: 66 Year
  Sex: Male
  Weight: 72 kg

DRUGS (6)
  1. CLARITHROMYCIN [Suspect]
     Indication: HELICOBACTER INFECTION
     Dosage: UNK (2 TIMES PER DAY 3 TABLETS)
     Route: 048
     Dates: start: 20121129, end: 20121205
  2. PANTOPRAZOLE SODIUM SESQUIHYDRATE [Suspect]
     Indication: HELICOBACTER INFECTION
     Dosage: UNK (2 TIMES PER DAY 3 TABLETS)
     Route: 048
     Dates: start: 20121129, end: 20121205
  3. AMOXICILLIN TRIHYDRATE [Suspect]
     Indication: HELICOBACTER INFECTION
     Dosage: UNK (2 TIMES PER DAY 3 TABLETS)
     Route: 048
     Dates: start: 20121129, end: 20121205
  4. OXAZEPAM [Concomitant]
     Indication: ANXIETY
  5. ANTIDEPRESSANTS [Concomitant]
     Indication: PRODUCT USED FOR UNKNOWN INDICATION
  6. ZINC [Concomitant]
     Indication: PRODUCT USED FOR UNKNOWN INDICATION

REACTIONS (5)
  - Mental disorder [Recovering/Resolving]
  - Anal pruritus [Recovering/Resolving]
  - Nightmare [Recovering/Resolving]
  - Insomnia [Recovering/Resolving]
  - Diarrhoea [Recovering/Resolving]
